FAERS Safety Report 16755466 (Version 1)
Quarter: 2019Q3

REPORT INFORMATION
  Report Type: Spontaneous
  Country: AR (occurrence: AR)
  Receive Date: 20190829
  Receipt Date: 20190829
  Transmission Date: 20191005
  Serious: Yes (Hospitalization, Other)
  Sender: FDA-Public Use
  Company Number: AR-BAYER-2019-155812

PATIENT
  Age: 64 Year
  Sex: Male
  Weight: 122 kg

DRUGS (1)
  1. NEXAVAR [Suspect]
     Active Substance: SORAFENIB
     Indication: HEPATOCELLULAR CARCINOMA
     Dosage: 400 MG, QD
     Dates: start: 20180601, end: 2018

REACTIONS (5)
  - Peritoneal haemorrhage [None]
  - Off label use [None]
  - Hypovolaemic shock [None]
  - Asthenia [None]
  - Hepatocellular carcinoma [None]

NARRATIVE: CASE EVENT DATE: 2018
